FAERS Safety Report 22343031 (Version 1)
Quarter: 2023Q2

REPORT INFORMATION
  Report Type: Spontaneous
  Country: GB (occurrence: GB)
  Receive Date: 20230519
  Receipt Date: 20230519
  Transmission Date: 20230722
  Serious: Yes (Death, Hospitalization, Other)
  Sender: FDA-Public Use
  Company Number: None

PATIENT

DRUGS (4)
  1. DACTINOMYCIN [Suspect]
     Active Substance: DACTINOMYCIN
     Indication: Epithelioid sarcoma
     Route: 065
     Dates: start: 20170728
  2. VINCRISTINE [Suspect]
     Active Substance: VINCRISTINE
     Indication: Epithelioid sarcoma
     Route: 065
     Dates: start: 20170728
  3. CYCLOPHOSPHAMIDE [Suspect]
     Active Substance: CYCLOPHOSPHAMIDE
     Indication: Epithelioid sarcoma
     Route: 065
     Dates: start: 20170728
  4. XALKORI [Suspect]
     Active Substance: CRIZOTINIB
     Indication: Epithelioid sarcoma metastatic
     Route: 048
     Dates: start: 20170811

REACTIONS (7)
  - Multiple organ dysfunction syndrome [Fatal]
  - Neoplasm progression [Unknown]
  - Hypoxia [Unknown]
  - Acidosis [Unknown]
  - Systemic candida [Unknown]
  - Sepsis [Unknown]
  - Off label use [Unknown]

NARRATIVE: CASE EVENT DATE: 20170809
